FAERS Safety Report 5792044-2 (Version None)
Quarter: 2008Q2

REPORT INFORMATION
  Report Type: 
  Country: None (occurrence: None)
  Receive Date: 20080626
  Receipt Date: 20080619
  Transmission Date: 20081010
  Serious: Yes (Other)
  Sender: FDA-Public Use
  Company Number: PHHY2008ID11333

PATIENT
  Sex: Female
  Weight: 40 kg

DRUGS (1)
  1. EXJADE [Suspect]
     Indication: IRON OVERLOAD
     Dosage: 875 MG, QD
     Route: 048
     Dates: start: 20080521, end: 20080525

REACTIONS (5)
  - ANGIOEDEMA [None]
  - EYELID OEDEMA [None]
  - LIP OEDEMA [None]
  - PRURITUS GENERALISED [None]
  - URTICARIA [None]
